FAERS Safety Report 6039738-1 (Version None)
Quarter: 2009Q1

REPORT INFORMATION
  Report Type: 
  Country: None (occurrence: None)
  Receive Date: 20090116
  Receipt Date: 20090108
  Transmission Date: 20090719
  Serious: Yes (Hospitalization)
  Sender: FDA-Public Use
  Company Number: GB-WYE-H07658109

PATIENT
  Sex: Male

DRUGS (8)
  1. CORDARONE [Suspect]
     Route: 048
     Dates: start: 20081201
  2. ASPIRIN [Concomitant]
     Dosage: DOSE AND FREQUENCY NOT SPECIFIED
     Route: 065
  3. NITROGLYCERIN [Concomitant]
     Dosage: DOSE AND FREQUENCY NOT SPECIFIED
     Route: 065
  4. AMITRIPTYLINE HCL [Concomitant]
     Dosage: DOSE AND FREQUENCY NOT SPECIFIED
     Route: 065
  5. FRUSEMIDE [Concomitant]
     Dosage: DOSE AND FREQUENCY NOT SPECIFIED
     Route: 065
  6. ALBUTEROL [Concomitant]
     Dosage: DOSE AND FREQUENCY NOT SPECIFIED
     Route: 065
  7. SIMVASTATIN [Concomitant]
     Dosage: 20 MG, FREQUENCY NOT SPECIFIED
     Route: 065
  8. CARBOCISTEINE [Concomitant]
     Dosage: DOSE AND FREQUENCY NOT SPECIFIED
     Route: 065

REACTIONS (2)
  - LUNG INJURY [None]
  - PLEURAL EFFUSION [None]
